FAERS Safety Report 9096402 (Version 1)
Quarter: 2013Q1

REPORT INFORMATION
  Report Type: Spontaneous
  Country: US (occurrence: None)
  Receive Date: 20130124
  Receipt Date: 20130124
  Transmission Date: 20140127
  Serious: Yes (Death)
  Sender: FDA-Public Use
  Company Number: 2013SP000329

PATIENT
  Age: 54 Year
  Sex: Male

DRUGS (6)
  1. DILTIAZEM HYDROCHLORIDE [Suspect]
  2. ACETAMINOPHEN [Concomitant]
  3. HYDROCODONE [Suspect]
  4. HYDROMORPHONE [Suspect]
  5. LORAZEPAM [Suspect]
  6. MIDAZOLAM [Suspect]

REACTIONS (2)
  - Intentional drug misuse [None]
  - Toxicity to various agents [None]
